FAERS Safety Report 8916060 (Version 1)
Quarter: 2012Q4

REPORT INFORMATION
  Report Type: 
  Country: US (occurrence: US)
  Receive Date: 20121119
  Receipt Date: 20121119
  Transmission Date: 20130627
  Serious: No
  Sender: FDA-Public Use
  Company Number: US-VERTEX PHARMACEUTICAL INC.-2012-024583

PATIENT
  Age: 55 Year
  Sex: Female
  Weight: 93 kg

DRUGS (5)
  1. VX-950 (TELAPREVIR) [Suspect]
     Indication: HEPATITIS C
     Dosage: 750 mg, tid
     Route: 048
  2. PEGASYS [Concomitant]
     Indication: HEPATITIS C
     Dosage: 180 ?g, UNK
     Route: 058
  3. RIBAPAK [Concomitant]
     Indication: HEPATITIS C
     Route: 048
  4. AMLODIPINE [Concomitant]
     Dosage: 5 mg, UNK
     Route: 048
  5. LISINOPRIL [Concomitant]
     Dosage: 20 mg, UNK
     Route: 048

REACTIONS (1)
  - Anaemia [Unknown]
